FAERS Safety Report 11111736 (Version 11)
Quarter: 2021Q4

REPORT INFORMATION
  Report Type: Other
  Country: CA (occurrence: CA)
  Receive Date: 20150514
  Receipt Date: 20211218
  Transmission Date: 20220303
  Serious: Yes (Other)
  Sender: FDA-Public Use
  Company Number: CA-ROCHE-1577851

PATIENT
  Age: 43 Year
  Sex: Female

DRUGS (6)
  1. XOLAIR [Suspect]
     Active Substance: OMALIZUMAB
     Indication: Asthma
     Route: 058
     Dates: start: 20100211, end: 20151208
  2. XOLAIR [Suspect]
     Active Substance: OMALIZUMAB
     Route: 058
     Dates: start: 20191227
  3. XOLAIR [Suspect]
     Active Substance: OMALIZUMAB
     Route: 058
     Dates: start: 20200120
  4. XOLAIR [Suspect]
     Active Substance: OMALIZUMAB
     Route: 058
     Dates: start: 20191127
  5. PREDNISONE [Suspect]
     Active Substance: PREDNISONE
     Indication: Sinus polyp
     Route: 065
     Dates: start: 20150428
  6. CORTISONE [Suspect]
     Active Substance: CORTISONE
     Indication: Product used for unknown indication
     Route: 065

REACTIONS (21)
  - Anaphylactic shock [Unknown]
  - Haematuria [Unknown]
  - Blood iron decreased [Unknown]
  - Blood cholesterol increased [Unknown]
  - Influenza [Recovered/Resolved]
  - Amnesia [Unknown]
  - Mouth ulceration [Unknown]
  - Sinus polyp [Unknown]
  - Paranasal sinus discomfort [Unknown]
  - Sinusitis [Unknown]
  - Bronchitis [Unknown]
  - Nasopharyngitis [Unknown]
  - Cough [Unknown]
  - Dyspnoea exertional [Unknown]
  - Sputum discoloured [Unknown]
  - Arthralgia [Unknown]
  - Fatigue [Unknown]
  - Feeling abnormal [Unknown]
  - Weight increased [Unknown]
  - Inappropriate schedule of product administration [Unknown]
  - Drug ineffective [Unknown]

NARRATIVE: CASE EVENT DATE: 20141212
